FAERS Safety Report 25973053 (Version 2)
Quarter: 2025Q4

REPORT INFORMATION
  Report Type: Spontaneous
  Country: US (occurrence: US)
  Receive Date: 20251029
  Receipt Date: 20251111
  Transmission Date: 20260118
  Serious: Yes (Other)
  Sender: SANDOZ
  Company Number: US-SANDOZ-SDZ2025US078777

PATIENT

DRUGS (1)
  1. ALPRAZOLAM [Suspect]
     Active Substance: ALPRAZOLAM
     Indication: Product used for unknown indication
     Dosage: (0.25 MG)
     Route: 065

REACTIONS (3)
  - Autoimmune enteropathy [Unknown]
  - Immunodeficiency [Unknown]
  - Gastrointestinal injury [Unknown]
